FAERS Safety Report 24345511 (Version 2)
Quarter: 2024Q4

REPORT INFORMATION
  Report Type: Spontaneous
  Country: FR (occurrence: FR)
  Receive Date: 20240920
  Receipt Date: 20241017
  Transmission Date: 20250115
  Serious: Yes (Hospitalization, Disabling)
  Sender: PURDUE
  Company Number: FR-PURDUE-USA-2024-0312077

PATIENT
  Age: 92 Year
  Sex: Female
  Weight: 55 kg

DRUGS (3)
  1. OXYCONTIN [Suspect]
     Active Substance: OXYCODONE HYDROCHLORIDE
     Indication: Osteoarthritis
     Dosage: 1 MORNING AND 1 EVENING
     Route: 048
     Dates: start: 20121108
  2. ZOPICLONE [Suspect]
     Active Substance: ZOPICLONE
     Indication: Insomnia
     Dosage: 7.5 MILLIGRAM (1 EVENING)
     Route: 048
  3. OXAZEPAM [Suspect]
     Active Substance: OXAZEPAM
     Indication: Anxiety
     Dosage: 1 DOSAGE FORM (1 EVENING)
     Route: 048

REACTIONS (2)
  - Balance disorder [Recovered/Resolved with Sequelae]
  - Fall [Recovered/Resolved with Sequelae]

NARRATIVE: CASE EVENT DATE: 20240421
